FAERS Safety Report 4420042-X (Version None)
Quarter: 2004Q2

REPORT INFORMATION
  Report Type: 
  Country: None (occurrence: None)
  Receive Date: 20040622
  Receipt Date: 20030718
  Transmission Date: 20050107
  Serious: Yes (Hospitalization)
  Sender: FDA-Public Use
  Company Number: 343341

PATIENT
  Age: 63 Year
  Sex: Female

DRUGS (1)
  1. XELODA [Suspect]
     Indication: OVARIAN CANCER
     Dosage: ORAL
     Route: 048
     Dates: end: 20030709

REACTIONS (1)
  - ANGINA UNSTABLE [None]
